FAERS Safety Report 22324496 (Version 1)
Quarter: 2023Q2

REPORT INFORMATION
  Report Type: Spontaneous
  Country: US (occurrence: None)
  Receive Date: 20230515
  Receipt Date: 20230515
  Transmission Date: 20230721
  Serious: No
  Sender: FDA-Public Use
  Company Number: None

PATIENT
  Age: 71 Year
  Sex: Male
  Weight: 89.36 kg

DRUGS (17)
  1. CAPECITABINE [Suspect]
     Active Substance: CAPECITABINE
     Indication: Oesophageal carcinoma
     Dosage: FREQUENCY : TWICE A DAY;?
     Route: 048
     Dates: start: 202209
  2. MAGNESIUM [Concomitant]
     Active Substance: MAGNESIUM
  3. ALLOPURINOL [Concomitant]
  4. ATORVASTATIN [Concomitant]
  5. CALCIUM [Concomitant]
     Active Substance: CALCIUM
  6. CYCLOBENZAPRINE [Concomitant]
  7. FLONASE [Concomitant]
     Active Substance: FLUTICASONE PROPIONATE
  8. GABAPENTIN [Concomitant]
     Active Substance: GABAPENTIN
  9. LASIX [Concomitant]
     Active Substance: FUROSEMIDE
  10. LOTREL [Concomitant]
     Active Substance: AMLODIPINE BESYLATE\BENAZEPRIL HYDROCHLORIDE
  11. MENS 50+ADVANCED [Concomitant]
  12. METOPROLOL [Concomitant]
  13. NAPROXEN [Concomitant]
     Active Substance: NAPROXEN
  14. PREDNISONE [Concomitant]
  15. TAMOXIFEN [Concomitant]
  16. TAMSULOSIN [Concomitant]
  17. VITAMIN D3 [Concomitant]
     Active Substance: CHOLECALCIFEROL

REACTIONS (2)
  - Oesophageal carcinoma [None]
  - Malignant neoplasm progression [None]
